FAERS Safety Report 5447607-0 (Version None)
Quarter: 2007Q3

REPORT INFORMATION
  Report Type: 
  Country: None (occurrence: None)
  Receive Date: 20070910
  Receipt Date: 20070829
  Transmission Date: 20080115
  Serious: Yes (Hospitalization)
  Sender: FDA-Public Use
  Company Number: DE-ROCHE-507553

PATIENT
  Age: 55 Year
  Sex: Male
  Weight: 83 kg

DRUGS (2)
  1. INTERFERON ALFA-2A [Suspect]
     Route: 058
     Dates: start: 20060925
  2. METFORMIN HCL [Suspect]
     Indication: DRUG USE FOR UNKNOWN INDICATION
     Dosage: TDD REPORTED AS 1000.
     Route: 065
     Dates: start: 20050101

REACTIONS (1)
  - GASTRITIS [None]
